FAERS Safety Report 20945444 (Version 1)
Quarter: 2022Q2

REPORT INFORMATION
  Report Type: Spontaneous
  Country: JP (occurrence: JP)
  Receive Date: 20220610
  Receipt Date: 20220610
  Transmission Date: 20220721
  Serious: Yes (Death, Other)
  Sender: FDA-Public Use
  Company Number: JP-GLAXOSMITHKLINE-JP2022JPN090680

PATIENT

DRUGS (1)
  1. LAMICTAL [Suspect]
     Active Substance: LAMOTRIGINE
     Indication: Bipolar disorder
     Dosage: UNK
     Route: 064

REACTIONS (7)
  - Foetal death [Fatal]
  - Haemorrhage intracranial [Unknown]
  - Baseline foetal heart rate variability disorder [Unknown]
  - Foetal heart rate deceleration abnormality [Unknown]
  - Subdural haematoma [Unknown]
  - Haematoma [Unknown]
  - Foetal exposure during pregnancy [Unknown]
